FAERS Safety Report 8875427 (Version 4)
Quarter: 2012Q4

REPORT INFORMATION
  Report Type: 
  Country: US (occurrence: US)
  Receive Date: 20121029
  Receipt Date: 20121227
  Transmission Date: 20130627
  Serious: Yes (Hospitalization, Other)
  Sender: FDA-Public Use
  Company Number: US-PFIZER INC-2012269397

PATIENT
  Age: 75 Year
  Sex: Male

DRUGS (5)
  1. DEPO-MEDROL [Suspect]
     Indication: KNEE PAIN
     Dosage: 40 mg, UNK
     Dates: start: 20120826
  2. DEPO-MEDROL [Suspect]
     Indication: SWELLING OF KNEES
     Dosage: 40 mg, UNK
     Dates: start: 20120830
  3. DEPO-MEDROL [Suspect]
     Indication: OSTEOARTHRITIS
     Dosage: 40 mg, UNK
     Route: 014
     Dates: start: 20120826
  4. DEPO-MEDROL [Suspect]
     Dosage: 40 mg, UNK
     Route: 014
     Dates: start: 20120830
  5. LIDOCAINE [Concomitant]
     Dosage: UNK

REACTIONS (2)
  - Arthritis infective [Recovering/Resolving]
  - Drug ineffective [Unknown]
